FAERS Safety Report 15579780 (Version 2)
Quarter: 2018Q4

REPORT INFORMATION
  Report Type: Spontaneous
  Country: FR (occurrence: FR)
  Receive Date: 20181102
  Receipt Date: 20181106
  Transmission Date: 20190205
  Serious: Yes (Hospitalization, Other)
  Sender: FDA-Public Use
  Company Number: FR-SANOFI-AVENTIS-2012SA034275

PATIENT
  Age: 66 Year
  Sex: Male

DRUGS (4)
  1. ALCOHOL. [Suspect]
     Active Substance: ALCOHOL
     Dosage: UNK UNK,UNK
     Route: 048
  2. AMAREL [Suspect]
     Active Substance: GLIMEPIRIDE
     Indication: PRODUCT USED FOR UNKNOWN INDICATION
     Dosage: 3 MG,QD
     Route: 048
  3. LESCOL [Concomitant]
     Active Substance: FLUVASTATIN SODIUM
     Dosage: 80 MG,QD
     Route: 048
  4. TAREG [Concomitant]
     Active Substance: VALSARTAN
     Dosage: 40 MG,QD
     Route: 048

REACTIONS (4)
  - Hypoglycaemia [Recovered/Resolved]
  - Malaise [Recovered/Resolved]
  - Drug interaction [Unknown]
  - Hypoglycaemic seizure [Recovered/Resolved]

NARRATIVE: CASE EVENT DATE: 20110912
